FAERS Safety Report 24243305 (Version 1)
Quarter: 2024Q3

REPORT INFORMATION
  Report Type: Spontaneous
  Country: US (occurrence: None)
  Receive Date: 20240823
  Receipt Date: 20240823
  Transmission Date: 20241016
  Serious: Yes (Hospitalization)
  Sender: Public
  Company Number: None

PATIENT
  Age: 42 Year
  Sex: Female

DRUGS (1)
  1. KESIMPTA [Suspect]
     Active Substance: OFATUMUMAB
     Indication: Multiple sclerosis
     Dosage: 20MG EVERY MONTH UNDER THE SKIN?
     Route: 058
     Dates: start: 202207

REACTIONS (1)
  - Gait inability [None]

NARRATIVE: CASE EVENT DATE: 20240806
